FAERS Safety Report 19110808 (Version 1)
Quarter: 2021Q2

REPORT INFORMATION
  Report Type: Spontaneous
  Country: IL (occurrence: IL)
  Receive Date: 20210409
  Receipt Date: 20210409
  Transmission Date: 20210717
  Serious: Yes (Death, Life-Threatening, Other)
  Sender: FDA-Public Use
  Company Number: IL-TEVA-2021-IL-1898167

PATIENT
  Age: 40 Year
  Sex: Female

DRUGS (7)
  1. DOXORUBICIN [Suspect]
     Active Substance: DOXORUBICIN
     Indication: HEPATIC ANGIOSARCOMA
     Dosage: TWO DOSES OF DOXORUBICIN (37.5 MG/M2/DOSE)
     Route: 065
  2. ECULIZUMAB [Suspect]
     Active Substance: ECULIZUMAB
     Indication: PROTEIN-LOSING GASTROENTEROPATHY
     Dosage: 5 WEEKLY LOADING DOSES OF 900 MG, FOLLOWED BY A MAINTENANCE DOSE OF 1200 MG TWICE A MONTH.
     Route: 050
  3. ECULIZUMAB [Suspect]
     Active Substance: ECULIZUMAB
     Route: 050
  4. PEGFILGRASTIM [Concomitant]
     Active Substance: PEGFILGRASTIM
     Indication: PROPHYLAXIS
     Route: 058
  5. DOXORUBICIN [Suspect]
     Active Substance: DOXORUBICIN
     Indication: CONDITION AGGRAVATED
  6. IFOSFAMIDE. [Suspect]
     Active Substance: IFOSFAMIDE
     Indication: CONDITION AGGRAVATED
  7. IFOSFAMIDE. [Suspect]
     Active Substance: IFOSFAMIDE
     Indication: HEPATIC ANGIOSARCOMA
     Route: 050

REACTIONS (9)
  - Off label use [Unknown]
  - Metabolic encephalopathy [Unknown]
  - Condition aggravated [Unknown]
  - Sepsis [Fatal]
  - Neutropenia [Unknown]
  - Hepatic angiosarcoma [Unknown]
  - Pancytopenia [Unknown]
  - Neurotoxicity [Unknown]
  - Escherichia bacteraemia [Fatal]
